FAERS Safety Report 7637232-5 (Version None)
Quarter: 2011Q3

REPORT INFORMATION
  Report Type: 
  Country: None (occurrence: None)
  Receive Date: 20110726
  Receipt Date: 20091119
  Transmission Date: 20111222
  Serious: Yes (Other)
  Sender: FDA-Public Use
  Company Number: US-BAYER-200939963NA

PATIENT
  Age: 83 Year
  Sex: Male
  Weight: 63 kg

DRUGS (12)
  1. TRASYLOL [Suspect]
     Indication: CORONARY ARTERY BYPASS
  2. METOPROLOL TARTRATE [Concomitant]
     Dosage: 5 MG, UNK
     Route: 042
  3. FENTANYL [Concomitant]
     Route: 042
  4. VERSED [Concomitant]
     Route: 042
  5. LEVOPHED [Concomitant]
     Route: 042
  6. ESOMEPRAZOLE MAGNESIUM [Concomitant]
     Route: 048
  7. RED BLOOD CELLS [Concomitant]
     Dosage: 2 U, ONCE
     Route: 042
     Dates: start: 20060808
  8. TRASYLOL [Suspect]
     Indication: AORTIC VALVE REPLACEMENT
     Dosage: UNK
     Route: 042
     Dates: start: 20060808
  9. TRASYLOL [Suspect]
     Indication: COX-MAZE PROCEDURE
  10. HEPARIN [Concomitant]
     Dosage: UNK
     Route: 042
     Dates: start: 20060808
  11. CEFAZOLIN [Concomitant]
     Dosage: 2 G, UNK
     Route: 042
     Dates: start: 20060808
  12. PROTAMINE SULFATE [Concomitant]
     Dosage: 5MG/KG
     Route: 042

REACTIONS (11)
  - RENAL INJURY [None]
  - UNEVALUABLE EVENT [None]
  - FEAR [None]
  - ANHEDONIA [None]
  - EMOTIONAL DISTRESS [None]
  - STRESS [None]
  - RENAL FAILURE [None]
  - RENAL IMPAIRMENT [None]
  - INJURY [None]
  - ANXIETY [None]
  - PAIN [None]
